FAERS Safety Report 5638256-X (Version None)
Quarter: 2008Q1

REPORT INFORMATION
  Report Type: 
  Country: None (occurrence: None)
  Receive Date: 20080221
  Receipt Date: 20080211
  Transmission Date: 20080703
  Serious: Yes (Other)
  Sender: FDA-Public Use
  Company Number: DSU-2007-00985

PATIENT
  Age: 59 Year
  Sex: Female
  Weight: 54.8852 kg

DRUGS (9)
  1. BENICAR [Suspect]
     Indication: HYPERTENSION
     Dosage: 20 MG (20 MG,QD), PER ORAL
     Route: 048
     Dates: start: 20071203, end: 20071203
  2. LASIX [Concomitant]
  3. ACTOS [Concomitant]
  4. ADVAIR (FLUTICASONE PROPIONATE, SALMETEROL XINAFOATE) (FLUTICASONE PRO [Concomitant]
  5. KCL (POTASSIUM CHLORIDE)  (POTASSIUM CHLORIDE) [Concomitant]
  6. GLIPIZIDE [Concomitant]
  7. FLONASE (FLUTICASONE PROPIONATE) (FLUTICASONE PROPIONATE) [Concomitant]
  8. METFORMIN HCL [Concomitant]
  9. ZOCOR [Concomitant]

REACTIONS (1)
  - HYPOTENSION [None]
